FAERS Safety Report 19892468 (Version 2)
Quarter: 2021Q3

REPORT INFORMATION
  Report Type: Spontaneous
  Country: FR (occurrence: FR)
  Receive Date: 20210929
  Receipt Date: 20210929
  Transmission Date: 20211014
  Serious: Yes (Other)
  Sender: FDA-Public Use
  Company Number: FR-ORION CORPORATION ORION PHARMA-20_00011474

PATIENT
  Age: 78 Year
  Sex: Male

DRUGS (2)
  1. IMETH [Suspect]
     Active Substance: METHOTREXATE SODIUM
     Indication: RHEUMATOID ARTHRITIS
     Dosage: STRENGTH: 10 MG, (ONE TABLET OF METHOTREXATE 10 MG ONCE DAILY)
     Route: 048
     Dates: start: 20200822, end: 20200918
  2. IMETH [Suspect]
     Active Substance: METHOTREXATE SODIUM
     Route: 065
     Dates: start: 20200919

REACTIONS (10)
  - Petechiae [Unknown]
  - Inappropriate schedule of product administration [Recovered/Resolved]
  - Aspartate aminotransferase increased [Recovered/Resolved]
  - Coagulation factor V level increased [Recovered/Resolved]
  - Blood fibrinogen increased [Recovered/Resolved]
  - Alanine aminotransferase increased [Recovered/Resolved]
  - Rash [Unknown]
  - Aplastic anaemia [Recovering/Resolving]
  - Overdose [Unknown]
  - Coagulation time prolonged [Recovered/Resolved]

NARRATIVE: CASE EVENT DATE: 20200822
